FAERS Safety Report 10301673 (Version 1)
Quarter: 2014Q3

REPORT INFORMATION
  Report Type: Spontaneous
  Country: US (occurrence: None)
  Receive Date: 20140709
  Receipt Date: 20140709
  Transmission Date: 20150326
  Serious: Yes (Other)
  Sender: FDA-Public Use
  Company Number: None

PATIENT
  Age: 61 Year
  Sex: Female
  Weight: 72.58 kg

DRUGS (1)
  1. TRIAMCINOLONE ACETONIDE CREAM 0.1% [Suspect]
     Active Substance: TRIAMCINOLONE ACETONIDE
     Indication: RASH
     Dosage: APPLY TO AFFECTED AREAS 2-3XS, TWICE DAILY
     Dates: start: 20140414, end: 20140629

REACTIONS (8)
  - Erythema [None]
  - Pain [None]
  - Joint swelling [None]
  - Application site burn [None]
  - Sunburn [None]
  - Chemical injury [None]
  - Rash [None]
  - Burns second degree [None]

NARRATIVE: CASE EVENT DATE: 20140628
